FAERS Safety Report 6213546-0 (Version None)
Quarter: 2009Q2

REPORT INFORMATION
  Report Type: 
  Country: None (occurrence: None)
  Receive Date: 20090603
  Receipt Date: 20090527
  Transmission Date: 20091009
  Serious: Yes (Other)
  Sender: FDA-Public Use
  Company Number: US-WATSON-2009-03813

PATIENT
  Sex: Female

DRUGS (1)
  1. FORTAMET [Suspect]
     Indication: TYPE 2 DIABETES MELLITUS
     Dosage: 500 MG DAILY TITRATED UP TO 1 G
     Route: 048

REACTIONS (4)
  - FALL [None]
  - FRACTURE [None]
  - LIMB INJURY [None]
  - MULTIPLE FRACTURES [None]
